FAERS Safety Report 18264084 (Version 3)
Quarter: 2020Q4

REPORT INFORMATION
  Report Type: Spontaneous
  Country: US (occurrence: US)
  Receive Date: 20200914
  Receipt Date: 20201001
  Transmission Date: 20210113
  Serious: No
  Sender: FDA-Public Use
  Company Number: US-TEVA-2020-US-1827593

PATIENT
  Sex: Female

DRUGS (2)
  1. ESZOPICLONE TEVA [Suspect]
     Active Substance: ESZOPICLONE
     Indication: INSOMNIA
     Route: 065
     Dates: start: 20200602
  2. ESZOPICLONE TEVA [Suspect]
     Active Substance: ESZOPICLONE
     Dosage: SHE USED 2 TABLETS OF 1 MG
     Route: 065

REACTIONS (2)
  - Drug ineffective [Unknown]
  - Product substitution issue [Unknown]

NARRATIVE: CASE EVENT DATE: 20200602
